FAERS Safety Report 14597060 (Version 3)
Quarter: 2018Q1

REPORT INFORMATION
  Report Type: Spontaneous
  Country: FR (occurrence: FR)
  Receive Date: 20180305
  Receipt Date: 20180312
  Transmission Date: 20180509
  Serious: Yes (Other)
  Sender: FDA-Public Use
  Company Number: FR-009507513-1802FRA013415

PATIENT
  Age: 70 Year
  Sex: Female

DRUGS (1)
  1. DIPROSALIC [Suspect]
     Active Substance: BETAMETHASONE DIPROPIONATE

REACTIONS (3)
  - Circumstance or information capable of leading to medication error [Unknown]
  - Headache [Unknown]
  - Breast cancer [Unknown]
